FAERS Safety Report 16280245 (Version 1)
Quarter: 2019Q2

REPORT INFORMATION
  Report Type: Spontaneous
  Country: US (occurrence: US)
  Receive Date: 20190401
  Receipt Date: 20190401
  Transmission Date: 20190711
  Serious: No
  Sender: FDA-Public Use
  Company Number: None

PATIENT
  Age: 33 Year
  Sex: Female

DRUGS (1)
  1. STELARA [Suspect]
     Active Substance: USTEKINUMAB
     Dates: start: 20181129, end: 20190101

REACTIONS (4)
  - Pain [None]
  - Influenza [None]
  - Drug ineffective [None]
  - Nasopharyngitis [None]

NARRATIVE: CASE EVENT DATE: 20190101
